FAERS Safety Report 6398610-8 (Version None)
Quarter: 2009Q4

REPORT INFORMATION
  Report Type: 
  Country: None (occurrence: None)
  Receive Date: 20091013
  Receipt Date: 20091005
  Transmission Date: 20100525
  Serious: Yes (Other)
  Sender: FDA-Public Use
  Company Number: US-AVENTIS-200918955US

PATIENT
  Sex: Female

DRUGS (5)
  1. LANTUS [Suspect]
     Route: 058
  2. LANTUS [Suspect]
     Dosage: DOSE: 22 UNITS AND 10 UNITS
  3. LIPITOR [Concomitant]
     Dosage: DOSE: UNK
  4. LANPRIL [Concomitant]
     Dosage: DOSE: UNK
  5. HUMALOG [Concomitant]
     Dosage: DOSE: UNK

REACTIONS (6)
  - BASEDOW'S DISEASE [None]
  - BLOOD GLUCOSE DECREASED [None]
  - BLOOD GLUCOSE INCREASED [None]
  - HYPERTHYROIDISM [None]
  - HYPOTHYROIDISM [None]
  - PARAESTHESIA [None]
